FAERS Safety Report 19120277 (Version 2)
Quarter: 2021Q2

REPORT INFORMATION
  Report Type: Spontaneous
  Country: JP (occurrence: JP)
  Receive Date: 20210412
  Receipt Date: 20210617
  Transmission Date: 20210717
  Serious: Yes (Hospitalization, Other)
  Sender: FDA-Public Use
  Company Number: JP-SUN PHARMACEUTICAL INDUSTRIES LTD-2021RR-290249

PATIENT
  Age: 76 Year
  Sex: Male
  Weight: 59.6 kg

DRUGS (5)
  1. ASPIRIN. [Concomitant]
     Active Substance: ASPIRIN
     Indication: FACTOR V INHIBITION
     Dosage: 100 MILLIGRAM, DAILY
     Route: 048
  2. LEVOFLOXACIN. [Suspect]
     Active Substance: LEVOFLOXACIN
     Indication: INFECTION
     Dosage: 500 MILLIGRAM, DAILY
     Route: 065
     Dates: start: 201808
  3. CLOPIDOGREL [Concomitant]
     Active Substance: CLOPIDOGREL BISULFATE
     Indication: FACTOR V INHIBITION
     Dosage: 75 MILLIGRAM, DAILY
     Route: 065
  4. APIXABAN [Interacting]
     Active Substance: APIXABAN
     Dosage: 10 MILLIGRAM, DAILY
     Route: 065
  5. APIXABAN [Interacting]
     Active Substance: APIXABAN
     Indication: PRODUCT USED FOR UNKNOWN INDICATION
     Dosage: 5 MILLIGRAM, DAILY
     Route: 065

REACTIONS (4)
  - Cerebral infarction [Unknown]
  - Factor V inhibition [Unknown]
  - Haemorrhage [Recovering/Resolving]
  - Drug interaction [Unknown]
